FAERS Safety Report 19440466 (Version 1)
Quarter: 2021Q2

REPORT INFORMATION
  Report Type: Spontaneous
  Country: US (occurrence: US)
  Receive Date: 20210621
  Receipt Date: 20210621
  Transmission Date: 20210717
  Serious: No
  Sender: FDA-Public Use
  Company Number: US-JNJFOC-20210637312

PATIENT
  Age: 60 Year
  Sex: Female

DRUGS (2)
  1. CABOTEGRAVIR [Suspect]
     Active Substance: CABOTEGRAVIR
     Indication: HIV INFECTION
     Dosage: UNK UNK, Z, ONE 400MG INJECTION OF CABOTEGRAVIR AND ONE 600MG INJECTION OF RILPIVIRINE ONCE A MONTH
     Route: 065
     Dates: start: 2018
  2. RILPIVIRINE [Suspect]
     Active Substance: RILPIVIRINE
     Indication: HIV INFECTION
     Dosage: UNK UNK, Z, ONE 400MG INJECTION OF CABOTEGRAVIR AND ONE 600MG INJECTION OF RILPIVIRINE ONCE A MONTH
     Route: 065
     Dates: start: 2018

REACTIONS (2)
  - Pain [Not Recovered/Not Resolved]
  - Fatigue [Not Recovered/Not Resolved]

NARRATIVE: CASE EVENT DATE: 2018
